FAERS Safety Report 6400099-7 (Version None)
Quarter: 2009Q4

REPORT INFORMATION
  Report Type: 
  Country: None (occurrence: None)
  Receive Date: 20091014
  Receipt Date: 20091008
  Transmission Date: 20100525
  Serious: Yes (Other)
  Sender: FDA-Public Use
  Company Number: B0597239A

PATIENT
  Sex: Male

DRUGS (2)
  1. FLIXOTIDE [Suspect]
     Indication: ASTHMA
     Dosage: 500MCG THREE TIMES PER DAY
     Route: 055
  2. SEREVENT [Suspect]
     Indication: ASTHMA
     Route: 055

REACTIONS (1)
  - ADRENAL SUPPRESSION [None]
